FAERS Safety Report 26167735 (Version 1)
Quarter: 2025Q4

REPORT INFORMATION
  Report Type: Spontaneous
  Country: US (occurrence: US)
  Receive Date: 20251217
  Receipt Date: 20251217
  Transmission Date: 20260118
  Serious: Yes (Death, Other)
  Sender: IPSEN BIOPHARMACEUTICALS, INC.
  Company Number: US-IPSEN Group, Research and Development-2025-30857

PATIENT
  Age: 3 Year
  Sex: Female

DRUGS (6)
  1. IRINOTECAN HYDROCHLORIDE [Suspect]
     Active Substance: IRINOTECAN HYDROCHLORIDE
     Indication: Spindle cell sarcoma
     Dosage: UNK
  2. IRINOTECAN HYDROCHLORIDE [Suspect]
     Active Substance: IRINOTECAN HYDROCHLORIDE
     Indication: Off label use
  3. DABRAFENIB [Suspect]
     Active Substance: DABRAFENIB
     Indication: Spindle cell sarcoma
     Dosage: UNK
  4. TRAMETINIB [Suspect]
     Active Substance: TRAMETINIB
     Indication: Spindle cell sarcoma
     Dosage: UNK
  5. TOPOTECAN [Suspect]
     Active Substance: TOPOTECAN HYDROCHLORIDE
     Indication: Spindle cell sarcoma
     Dosage: UNK
  6. TEMOZOLOMIDE [Suspect]
     Active Substance: TEMOZOLOMIDE
     Indication: Spindle cell sarcoma
     Dosage: UNK

REACTIONS (3)
  - Death [Fatal]
  - Metastases to central nervous system [Unknown]
  - Off label use [Unknown]
